FAERS Safety Report 6304602-7 (Version None)
Quarter: 2009Q3

REPORT INFORMATION
  Report Type: 
  Country: None (occurrence: None)
  Receive Date: 20090811
  Receipt Date: 20090803
  Transmission Date: 20100115
  Serious: Yes (Hospitalization)
  Sender: FDA-Public Use
  Company Number: SE-JNJFOC-20090800670

PATIENT
  Sex: Female

DRUGS (1)
  1. CONCERTA [Suspect]
     Indication: DRUG USE FOR UNKNOWN INDICATION
     Dosage: 30 - 40 TABLETS A TOTAL (TOTAL DOSAGE 1.62 - 2.16 G)
     Route: 048

REACTIONS (3)
  - MOTOR DYSFUNCTION [None]
  - OVERDOSE [None]
  - TACHYCARDIA [None]
